FAERS Safety Report 11582468 (Version 1)
Quarter: 2015Q4

REPORT INFORMATION
  Report Type: Spontaneous
  Country: US (occurrence: US)
  Receive Date: 20151001
  Receipt Date: 20151001
  Transmission Date: 20160304
  Serious: No
  Sender: FDA-Public Use
  Company Number: US-ROCHE-669749

PATIENT
  Age: 53 Year
  Sex: Male
  Weight: 131.5 kg

DRUGS (8)
  1. PEGASYS [Suspect]
     Active Substance: PEGINTERFERON ALFA-2A
     Indication: HEPATITIS C
     Dosage: PRE-FILLED SYRINGE, WEEK 25 OF TREATMENT
     Route: 065
  2. HYDROCHLOROTHIAZIDE/LISINOPRIL [Concomitant]
     Active Substance: HYDROCHLOROTHIAZIDE\LISINOPRIL
     Route: 065
  3. PROCRIT [Concomitant]
     Active Substance: ERYTHROPOIETIN
     Dosage: FORM: INJECTION
     Route: 065
  4. BACLOFEN. [Concomitant]
     Active Substance: BACLOFEN
     Route: 065
  5. CITALOPRAM [Concomitant]
     Active Substance: CITALOPRAM HYDROBROMIDE
     Dosage: DRUG REPORTED AS: CITALOPRAMINE
     Route: 065
  6. OMEPRAZOLE. [Concomitant]
     Active Substance: OMEPRAZOLE
     Route: 065
  7. COPEGUS [Suspect]
     Active Substance: RIBAVIRIN
     Indication: HEPATITIS C
     Dosage: DIVIDED DOSES, WEEK 25 OF TREATMENT
     Route: 065
  8. RESTORIL [Concomitant]
     Active Substance: TEMAZEPAM
     Route: 065

REACTIONS (16)
  - Nausea [Unknown]
  - Sputum discoloured [Not Recovered/Not Resolved]
  - Insomnia [Unknown]
  - Ichthyosis [Unknown]
  - Anxiety [Unknown]
  - Skin mass [Unknown]
  - Eczema [Unknown]
  - Tachyphrenia [Unknown]
  - Depression [Unknown]
  - Injection site mass [Not Recovered/Not Resolved]
  - Blister [Unknown]
  - Weight decreased [Unknown]
  - Chills [Unknown]
  - Parosmia [Unknown]
  - Dry throat [Unknown]
  - Peripheral arterial occlusive disease [Unknown]

NARRATIVE: CASE EVENT DATE: 20091101
